FAERS Safety Report 4659831-5 (Version None)
Quarter: 2005Q2

REPORT INFORMATION
  Report Type: 
  Country: None (occurrence: None)
  Receive Date: 20050510
  Receipt Date: 20050427
  Transmission Date: 20051028
  Serious: Yes (Other)
  Sender: FDA-Public Use
  Company Number: 2005067025

PATIENT
  Sex: Female

DRUGS (1)
  1. PROVERA [Suspect]
     Indication: ILL-DEFINED DISORDER
     Dosage: 100 MG (100 MG, DAILY), ORAL
     Route: 048

REACTIONS (1)
  - ARTHROPATHY [None]
